FAERS Safety Report 9857488 (Version 2)
Quarter: 2014Q1

REPORT INFORMATION
  Report Type: Report from Study
  Country: CA (occurrence: CA)
  Receive Date: 20140131
  Receipt Date: 20140131
  Transmission Date: 20141002
  Serious: Yes (Death, Hospitalization)
  Sender: FDA-Public Use
  Company Number: PHHY2013CA072989

PATIENT
  Age: 49 Year
  Sex: Female

DRUGS (4)
  1. ZOMETA [Suspect]
     Indication: PLASMA CELL MYELOMA
     Dosage: 3.3 MG, EVERY 4 WEEKS
     Route: 042
     Dates: start: 20130430
  2. ZOMETA [Suspect]
     Dosage: 3.3 MG, ONCE
     Route: 042
  3. ZOMETA [Suspect]
     Dosage: 3.3 MG, EVERY 4 WEEKS
     Route: 042
  4. ZOMETA [Suspect]
     Dosage: 3.5 MG, EVERY 4 WEEKS
     Route: 042
     Dates: end: 20131028

REACTIONS (5)
  - Death [Fatal]
  - Pyrexia [Unknown]
  - Headache [Unknown]
  - Sleep disorder [Unknown]
  - Laboratory test abnormal [Unknown]
